FAERS Safety Report 23166975 (Version 1)
Quarter: 2023Q4

REPORT INFORMATION
  Report Type: Spontaneous
  Country: GB (occurrence: GB)
  Receive Date: 20231109
  Receipt Date: 20231109
  Transmission Date: 20240109
  Serious: Yes (Life-Threatening, Hospitalization, Other)
  Sender: FDA-Public Use
  Company Number: GB-SUN PHARMACEUTICAL INDUSTRIES LTD-2023R1-416857

PATIENT
  Age: 27 Year
  Sex: Female

DRUGS (2)
  1. AMITRIPTYLINE [Suspect]
     Active Substance: AMITRIPTYLINE
     Indication: Depressed mood
     Dosage: UNK
     Route: 048
  2. AMITRIPTYLINE [Suspect]
     Active Substance: AMITRIPTYLINE
     Indication: Clinically isolated syndrome

REACTIONS (6)
  - Overdose [Unknown]
  - Mydriasis [Recovered/Resolved]
  - Ventricular tachycardia [Recovered/Resolved]
  - Shock [Recovered/Resolved]
  - Left ventricular dysfunction [Recovered/Resolved]
  - Seizure [Recovered/Resolved]
